FAERS Safety Report 21044027 (Version 2)
Quarter: 2022Q3

REPORT INFORMATION
  Report Type: Spontaneous
  Country: CN (occurrence: CN)
  Receive Date: 20220705
  Receipt Date: 20220720
  Transmission Date: 20221027
  Serious: Yes (Hospitalization, Disabling, Other)
  Sender: FDA-Public Use
  Company Number: CN-ORGANON-O2207CHN000094

PATIENT
  Age: 64 Year
  Sex: Female
  Weight: 55 kg

DRUGS (4)
  1. ARCOXIA [Suspect]
     Active Substance: ETORICOXIB
     Indication: Arthralgia
     Dosage: 60 MG, QD
     Route: 048
     Dates: start: 20200904, end: 202009
  2. ARCOXIA [Suspect]
     Active Substance: ETORICOXIB
     Dosage: 60 MG, QD
     Route: 048
     Dates: start: 20200916, end: 20200925
  3. DICLOFENAC DIETHYLAMINE [Concomitant]
     Active Substance: DICLOFENAC DIETHYLAMINE
     Indication: Arthralgia
     Dosage: 0.3G DAILY
     Dates: start: 20200916, end: 20200925
  4. GLUCOSAMINE SULFATE [Concomitant]
     Active Substance: GLUCOSAMINE SULFATE
     Indication: Arthralgia
     Dosage: 1.8 G DAILY
     Route: 048
     Dates: start: 20200916, end: 20200925

REACTIONS (1)
  - Stevens-Johnson syndrome [Recovered/Resolved with Sequelae]

NARRATIVE: CASE EVENT DATE: 20200918
